FAERS Safety Report 9554153 (Version 3)
Quarter: 2013Q4

REPORT INFORMATION
  Report Type: Spontaneous
  Country: JP (occurrence: JP)
  Receive Date: 20130925
  Receipt Date: 20131031
  Transmission Date: 20140711
  Serious: Yes (Hospitalization, Other)
  Sender: FDA-Public Use
  Company Number: JP-AMGEN-JPNSP2013067379

PATIENT
  Age: 58 Year
  Sex: Female
  Weight: 53 kg

DRUGS (5)
  1. ENBREL [Suspect]
     Indication: RHEUMATOID ARTHRITIS
     Dosage: 50 MG, EVERY 2 WEEKS
     Route: 058
     Dates: start: 201105
  2. METHOTREXATE [Concomitant]
     Indication: RHEUMATOID ARTHRITIS
     Dosage: 10 MG, WEEKLY
     Route: 048
  3. PREDONINE                          /00016201/ [Concomitant]
     Indication: RHEUMATOID ARTHRITIS
     Dosage: 1-2 MG DAILY
     Route: 048
  4. BUCILLAMINE [Concomitant]
     Dosage: 200 MG, DAILY
  5. SALAZOSULFAPYRIDINE [Concomitant]
     Dosage: 1000 MG, DAILY

REACTIONS (3)
  - Constipation [Unknown]
  - Large intestine perforation [Recovered/Resolved]
  - Peritonitis [Unknown]
